FAERS Safety Report 9340643 (Version 1)
Quarter: 2013Q2

REPORT INFORMATION
  Report Type: Spontaneous
  Country: CN (occurrence: CN)
  Receive Date: 20130610
  Receipt Date: 20130610
  Transmission Date: 20140414
  Serious: Yes (Hospitalization)
  Sender: FDA-Public Use
  Company Number: CN-EISAI INC-E2020-12433-SPO-CN

PATIENT
  Age: 76 Year
  Sex: Male
  Weight: 51 kg

DRUGS (5)
  1. ARICEPT [Suspect]
     Indication: DEMENTIA ALZHEIMER^S TYPE
     Route: 048
     Dates: start: 20111219, end: 20120417
  2. ARICEPT [Suspect]
     Route: 048
     Dates: start: 20120418, end: 20120605
  3. OLANZAPINE [Concomitant]
     Indication: PRODUCT USED FOR UNKNOWN INDICATION
     Dosage: UNKNOWN
     Route: 048
     Dates: start: 20120507
  4. QUETIAPINE [Concomitant]
     Indication: PRODUCT USED FOR UNKNOWN INDICATION
     Dosage: 0.5 MG/DAY
     Route: 048
     Dates: end: 20120507
  5. DAN-SHEN [Concomitant]
     Indication: PRODUCT USED FOR UNKNOWN INDICATION
     Dosage: 10 MG/DAY
     Route: 042
     Dates: start: 20120507

REACTIONS (1)
  - Electrocardiogram QT prolonged [Recovered/Resolved]
